FAERS Safety Report 4511796-2 (Version None)
Quarter: 2004Q4

REPORT INFORMATION
  Report Type: 
  Country: None (occurrence: None)
  Receive Date: 20041123
  Receipt Date: 20041123
  Transmission Date: 20050328
  Serious: Yes (Other)
  Sender: FDA-Public Use
  Company Number: None

PATIENT
  Age: 66 Year
  Sex: Male
  Weight: 98 kg

DRUGS (10)
  1. SIMVASTATIN [Suspect]
  2. KETOCONAZOLE 2% [Concomitant]
  3. DONEPEZIL HCL [Concomitant]
  4. PHENYTOIN NA [Concomitant]
  5. RANITIDINE HCL [Concomitant]
  6. FUROSEMIDE [Concomitant]
  7. TERAZOSIN HCL [Concomitant]
  8. IRBESARTAN [Concomitant]
  9. PAROXETINE HCL [Concomitant]
  10. MEXILETINE HCL [Concomitant]

REACTIONS (2)
  - ASTHENIA [None]
  - MYALGIA [None]
